FAERS Safety Report 4445976-1 (Version None)
Quarter: 2004Q3

REPORT INFORMATION
  Report Type: 
  Country: None (occurrence: None)
  Receive Date: 20040907
  Receipt Date: 20040823
  Transmission Date: 20050211
  Serious: Yes (Other)
  Sender: FDA-Public Use
  Company Number: 24954

PATIENT
  Age: 62 Year
  Sex: Female

DRUGS (1)
  1. ALDARA [Suspect]
     Indication: BASAL CELL CARCINOMA
     Dosage: (3 IN 1 WEEK (S))
     Route: 061
     Dates: start: 20040217, end: 20040406

REACTIONS (2)
  - DERMATITIS [None]
  - SEBORRHOEIC DERMATITIS [None]
